FAERS Safety Report 18462997 (Version 2)
Quarter: 2020Q4

REPORT INFORMATION
  Report Type: Report from Study
  Country: US (occurrence: US)
  Receive Date: 20201104
  Receipt Date: 20201112
  Transmission Date: 20210114
  Serious: No
  Sender: FDA-Public Use
  Company Number: US-GLAXOSMITHKLINE-US2020AMR211872

PATIENT
  Age: 70 Year
  Sex: Male

DRUGS (1)
  1. BELANTAMAB MAFODOTIN. [Suspect]
     Active Substance: BELANTAMAB MAFODOTIN
     Indication: PLASMA CELL MYELOMA
     Dosage: 2.5 MG/KG Q3WK CYCLE 2
     Dates: start: 20201014, end: 20201014

REACTIONS (9)
  - Corneal disorder [Unknown]
  - Abnormal sensation in eye [Unknown]
  - Keratopathy [Unknown]
  - Eye irritation [Unknown]
  - Visual impairment [Unknown]
  - Dry eye [Unknown]
  - Night blindness [Unknown]
  - Vision blurred [Unknown]
  - Visual acuity reduced [Unknown]

NARRATIVE: CASE EVENT DATE: 20201024
